FAERS Safety Report 9026444 (Version 2)
Quarter: 2013Q1

REPORT INFORMATION
  Report Type: Spontaneous
  Country: DE (occurrence: None)
  Receive Date: 20121226
  Receipt Date: 20121231
  Transmission Date: 20140127
  Serious: Yes (Hospitalization, Other)
  Sender: FDA-Public Use
  Company Number: 2012034275

PATIENT
  Age: 31 Year
  Sex: Female

DRUGS (1)
  1. HAEMATE [Suspect]
     Indication: HAEMORRHAGE PROPHYLAXIS
     Dosage: 2000 IU, 3500 IU THEREOF 2000 IU ADMINISTERED, INTRAVENOUS
     Dates: start: 20121210

REACTIONS (7)
  - Sensation of foreign body [None]
  - Paraesthesia oral [None]
  - Paraesthesia [None]
  - Flushing [None]
  - Dizziness [None]
  - Tachycardia [None]
  - Maternal exposure during pregnancy [None]
